FAERS Safety Report 16954248 (Version 1)
Quarter: 2019Q4

REPORT INFORMATION
  Report Type: Spontaneous
  Country: US (occurrence: US)
  Receive Date: 20191023
  Receipt Date: 20191023
  Transmission Date: 20200122
  Serious: No
  Sender: FDA-Public Use
  Company Number: US-ABBVIE-18S-163-2553336-00

PATIENT
  Sex: Female

DRUGS (1)
  1. LUPRON [Suspect]
     Active Substance: LEUPROLIDE ACETATE
     Indication: PRODUCT USED FOR UNKNOWN INDICATION
     Route: 058
     Dates: start: 201807

REACTIONS (6)
  - Injection site pain [Recovered/Resolved with Sequelae]
  - Discomfort [Recovered/Resolved with Sequelae]
  - Injection site erythema [Recovered/Resolved with Sequelae]
  - Neuralgia [Recovered/Resolved with Sequelae]
  - Hypoaesthesia [Recovered/Resolved with Sequelae]
  - Injection site swelling [Recovered/Resolved with Sequelae]

NARRATIVE: CASE EVENT DATE: 201807
